FAERS Safety Report 7729949-9 (Version None)
Quarter: 2011Q3

REPORT INFORMATION
  Report Type: 
  Country: None (occurrence: None)
  Receive Date: 20110906
  Receipt Date: 20110901
  Transmission Date: 20111222
  Serious: Yes (Hospitalization)
  Sender: FDA-Public Use
  Company Number: US-PFIZER INC-2011205429

PATIENT
  Sex: Male

DRUGS (4)
  1. CODEINE [Suspect]
     Route: 048
  2. OXYCODONE HCL AND ACETAMINOPHEN [Suspect]
     Indication: BACK PAIN
     Dosage: 10/325 MG
     Route: 048
  3. FIORINAL [Suspect]
     Route: 048
  4. XANAX [Suspect]
     Dosage: UNK
     Route: 048

REACTIONS (5)
  - NECK INJURY [None]
  - ROAD TRAFFIC ACCIDENT [None]
  - FEELING COLD [None]
  - DRUG SCREEN FALSE POSITIVE [None]
  - NECK PAIN [None]
